FAERS Safety Report 9102862 (Version 3)
Quarter: 2013Q1

REPORT INFORMATION
  Report Type: Spontaneous
  Country: US (occurrence: US)
  Receive Date: 20130219
  Receipt Date: 20130226
  Transmission Date: 20140127
  Serious: Yes (Hospitalization, Other)
  Sender: FDA-Public Use
  Company Number: US-RB-049760-13

PATIENT
  Age: 44 Year
  Sex: Male

DRUGS (1)
  1. DELSYM CHILDREN GRAPE [Suspect]
     Indication: NASOPHARYNGITIS
     Dosage: STOPPED ON 21-NOV-2012
     Route: 048
     Dates: start: 20121116

REACTIONS (2)
  - Heart rate irregular [Recovered/Resolved]
  - Unevaluable event [Recovered/Resolved]
